FAERS Safety Report 7996657-9 (Version None)
Quarter: 2011Q4

REPORT INFORMATION
  Report Type: 
  Country: None (occurrence: None)
  Receive Date: 20111123
  Receipt Date: 20111017
  Transmission Date: 20120403
  Serious: No
  Sender: FDA-Public Use
  Company Number: 337633

PATIENT
  Age: 62 Year
  Sex: Male

DRUGS (1)
  1. VICTOZA [Suspect]
     Indication: TYPE 2 DIABETES MELLITUS
     Dosage: SUBCUTANEOUS
     Route: 058

REACTIONS (7)
  - SALIVARY HYPERSECRETION [None]
  - NAUSEA [None]
  - FLATULENCE [None]
  - ABDOMINAL DISTENSION [None]
  - CONSTIPATION [None]
  - MALAISE [None]
  - DECREASED APPETITE [None]
